FAERS Safety Report 10422174 (Version 1)
Quarter: 2014Q3

REPORT INFORMATION
  Report Type: Spontaneous
  Country: US (occurrence: US)
  Receive Date: 20140901
  Receipt Date: 20140901
  Transmission Date: 20150326
  Serious: No
  Sender: FDA-Public Use
  Company Number: US-PFIZER INC-2014238570

PATIENT
  Age: 67 Year
  Sex: Female

DRUGS (1)
  1. SUTENT [Suspect]
     Active Substance: SUNITINIB MALATE
     Dosage: 25 MG, TAKE 1 DAILY 28 DAYS ON. 14 DAYS OFF, DAILY
     Route: 048
     Dates: start: 20130210

REACTIONS (3)
  - Dyspepsia [Unknown]
  - Dysgeusia [Unknown]
  - Glossodynia [Unknown]

NARRATIVE: CASE EVENT DATE: 20140826
